FAERS Safety Report 6638782-0 (Version None)
Quarter: 2010Q1

REPORT INFORMATION
  Report Type: 
  Country: None (occurrence: None)
  Receive Date: 20100317
  Receipt Date: 20100305
  Transmission Date: 20100710
  Serious: Yes (Other)
  Sender: FDA-Public Use
  Company Number: CA-PFIZER INC-2010028963

PATIENT
  Age: 75 Year
  Sex: Male

DRUGS (2)
  1. LYRICA [Suspect]
     Indication: BACK DISORDER
     Dosage: 150 MG, 2X/DAY
     Dates: start: 20100201
  2. OXYCODONE [Concomitant]
     Indication: ANALGESIC THERAPY
     Dosage: UNK

REACTIONS (3)
  - BACK DISORDER [None]
  - DRUG INEFFECTIVE [None]
  - NERVE COMPRESSION [None]
